FAERS Safety Report 8601892-2 (Version None)
Quarter: 2012Q3

REPORT INFORMATION
  Report Type: 
  Country: None (occurrence: None)
  Receive Date: 20120805
  Receipt Date: 20120731
  Transmission Date: 20120928
  Serious: Yes (Hospitalization)
  Sender: FDA-Public Use
  Company Number: 2012-002787

PATIENT
  Age: 19 Year
  Sex: Female

DRUGS (1)
  1. LOESTRIN 24 FE [Suspect]
     Dosage: ORAL
     Route: 048
     Dates: start: 20120716, end: 20120724

REACTIONS (3)
  - ANXIETY [None]
  - HALLUCINATION [None]
  - PARANOIA [None]
